FAERS Safety Report 6479515-0 (Version None)
Quarter: 2009Q4

REPORT INFORMATION
  Report Type: 
  Country: None (occurrence: None)
  Receive Date: 20091207
  Receipt Date: 20091207
  Transmission Date: 20100525
  Serious: Yes (Other)
  Sender: FDA-Public Use
  Company Number: None

PATIENT
  Age: 33 Year
  Sex: Female
  Weight: 78.0187 kg

DRUGS (1)
  1. CYMBALTA [Suspect]
     Indication: FIBROMYALGIA
     Dosage: 1 ONCE DAILY PO
     Route: 048
     Dates: start: 20090901, end: 20091001

REACTIONS (2)
  - ABDOMINAL PAIN UPPER [None]
  - GALLBLADDER PAIN [None]
